FAERS Safety Report 8162740-0 (Version None)
Quarter: 2012Q1

REPORT INFORMATION
  Report Type: 
  Country: None (occurrence: None)
  Receive Date: 20120224
  Receipt Date: 20120215
  Transmission Date: 20120608
  Serious: Yes (Hospitalization)
  Sender: FDA-Public Use
  Company Number: JP-JNJFOC-20120209970

PATIENT
  Age: 3 Decade
  Sex: Female

DRUGS (4)
  1. STELARA [Suspect]
     Indication: PSORIATIC ARTHROPATHY
     Route: 058
     Dates: start: 20110630, end: 20110630
  2. INFLIXIMAB [Suspect]
     Indication: PSORIATIC ARTHROPATHY
     Dosage: 10MG/KG PER MONTH
     Dates: end: 20110525
  3. METHOTREXATE [Concomitant]
     Indication: PSORIATIC ARTHROPATHY
     Route: 048
  4. PREDNISOLONE [Suspect]
     Indication: PSORIATIC ARTHROPATHY

REACTIONS (4)
  - ERYTHEMA INFECTIOSUM [None]
  - BLOOD ALKALINE PHOSPHATASE INCREASED [None]
  - GAMMA-GLUTAMYLTRANSFERASE INCREASED [None]
  - C-REACTIVE PROTEIN INCREASED [None]
